FAERS Safety Report 13510483 (Version 4)
Quarter: 2017Q4

REPORT INFORMATION
  Report Type: Spontaneous
  Country: US (occurrence: US)
  Receive Date: 20170503
  Receipt Date: 20171204
  Transmission Date: 20180320
  Serious: No
  Sender: FDA-Public Use
  Company Number: US-PFIZER INC-2017191685

PATIENT
  Age: 52 Year
  Sex: Male
  Weight: 82 kg

DRUGS (2)
  1. ADVIL PM [Suspect]
     Active Substance: DIPHENHYDRAMINE CITRATE\IBUPROFEN
     Indication: BACK PAIN
     Dosage: 400 MG, 1X/DAY
     Route: 048
     Dates: start: 201702, end: 201704
  2. ADVIL PM [Suspect]
     Active Substance: DIPHENHYDRAMINE CITRATE\IBUPROFEN
     Indication: INSOMNIA
     Dosage: 150 MG, 2X/DAY
     Route: 048
     Dates: start: 201707, end: 2017

REACTIONS (3)
  - Feeling abnormal [Unknown]
  - Intentional product use issue [Unknown]
  - Drug ineffective [Not Recovered/Not Resolved]

NARRATIVE: CASE EVENT DATE: 2017
